FAERS Safety Report 12360072 (Version 1)
Quarter: 2016Q2

REPORT INFORMATION
  Report Type: Spontaneous
  Country: HK (occurrence: HK)
  Receive Date: 20160512
  Receipt Date: 20160512
  Transmission Date: 20160815
  Serious: Yes (Other)
  Sender: FDA-Public Use
  Company Number: HK-MYLANLABS-2016M1019783

PATIENT

DRUGS (13)
  1. ATROPINE. [Concomitant]
     Active Substance: ATROPINE
     Dosage: 1.2 MG
     Route: 048
  2. ATROPINE. [Concomitant]
     Active Substance: ATROPINE
     Dosage: 1-5 MG/MIN
     Route: 050
  3. MORPHINE [Suspect]
     Active Substance: MORPHINE
     Indication: SEDATION
     Dosage: LOW DOSE
     Route: 050
  4. ATROPINE. [Concomitant]
     Active Substance: ATROPINE
     Dosage: 8.4 MG IN INCREMENTAL MANNER
     Route: 048
  5. EPINEPHRINE. [Concomitant]
     Active Substance: EPINEPHRINE
     Dosage: 10 MCG/MIN
     Route: 050
  6. AMLODIPINE [Concomitant]
     Active Substance: AMLODIPINE BESYLATE
     Route: 065
  7. ROCURONIUM BROMIDE. [Concomitant]
     Active Substance: ROCURONIUM BROMIDE
     Route: 065
  8. SALBUTAMOL [Concomitant]
     Active Substance: ALBUTEROL
     Route: 065
  9. FLUTICASONE PROPIONATE\SALMETEROL XINAFOATE [Concomitant]
     Active Substance: FLUTICASONE PROPIONATE\SALMETEROL XINAFOATE
     Route: 065
  10. CHARCOAL [Concomitant]
     Active Substance: ACTIVATED CHARCOAL
     Dosage: SINGLE DOSE OF 50 G
     Route: 065
  11. THEOPHYLLINE [Concomitant]
     Active Substance: THEOPHYLLINE ANHYDROUS
     Route: 065
  12. MIDAZOLAM [Suspect]
     Active Substance: MIDAZOLAM\MIDAZOLAM HYDROCHLORIDE
     Indication: SEDATION
     Dosage: LOW DOSE
     Route: 050
  13. ETOMIDATE. [Concomitant]
     Active Substance: ETOMIDATE
     Dosage: UNK
     Route: 065

REACTIONS (2)
  - Mental status changes [Unknown]
  - Delirium [Unknown]
